FAERS Safety Report 6286173-7 (Version None)
Quarter: 2009Q3

REPORT INFORMATION
  Report Type: 
  Country: None (occurrence: None)
  Receive Date: 20090728
  Receipt Date: 20090715
  Transmission Date: 20100115
  Serious: Yes (Other)
  Sender: FDA-Public Use
  Company Number: US-BAYER-200912170BCC

PATIENT
  Age: 72 Year
  Sex: Female
  Weight: 71 kg

DRUGS (4)
  1. ASPIRIN [Suspect]
     Indication: THROMBOSIS PROPHYLAXIS
     Dosage: AS USED: 81 MG  UNIT DOSE: 81 MG
     Dates: start: 20070101, end: 20080101
  2. ASPIRIN [Suspect]
     Dosage: AS USED: 81 MG  UNIT DOSE: 81 MG
     Dates: start: 20090713, end: 20090714
  3. ASPIRIN [Concomitant]
     Indication: DRUG USE FOR UNKNOWN INDICATION
     Route: 048
  4. CALTRATE CALCIUM SUPPLEMENT 600 D [Concomitant]
     Indication: DRUG USE FOR UNKNOWN INDICATION
     Route: 065

REACTIONS (2)
  - BLADDER PAIN [None]
  - BLOOD URINE PRESENT [None]
